FAERS Safety Report 6069788-0 (Version None)
Quarter: 2009Q1

REPORT INFORMATION
  Report Type: 
  Country: None (occurrence: None)
  Receive Date: 20090204
  Receipt Date: 20090204
  Transmission Date: 20090719
  Serious: Yes (Disabling)
  Sender: FDA-Public Use
  Company Number: None

PATIENT
  Age: 58 Year
  Sex: Female
  Weight: 109.7705 kg

DRUGS (2)
  1. LEVAQUIN [Suspect]
     Indication: PNEUMONIA
     Dosage: 750 DAILY PO
     Route: 048
  2. LEVAQUIN [Suspect]
     Indication: PNEUMONIA
     Dosage: 500 DAILY IV
     Route: 042

REACTIONS (2)
  - TENDON RUPTURE [None]
  - TENDONITIS [None]
